FAERS Safety Report 24063512 (Version 1)
Quarter: 2024Q3

REPORT INFORMATION
  Report Type: Spontaneous
  Country: CA (occurrence: CA)
  Receive Date: 20240709
  Receipt Date: 20240709
  Transmission Date: 20241016
  Serious: Yes (Hospitalization)
  Sender: BAUSCH AND LOMB
  Company Number: CA-BAUSCH-BL-2024-010448

PATIENT
  Age: 18 Year
  Sex: Female
  Weight: 49 kg

DRUGS (14)
  1. DEXAMETHASONE [Suspect]
     Active Substance: DEXAMETHASONE
     Indication: Ewing^s sarcoma
     Dosage: NOT SPECIFIED
     Route: 065
  2. CYCLOPHOSPHAMIDE [Suspect]
     Active Substance: CYCLOPHOSPHAMIDE
     Indication: Ewing^s sarcoma
     Dosage: NOT SPECIFIED
     Route: 065
  3. DOXORUBICIN [Suspect]
     Active Substance: DOXORUBICIN
     Indication: Ewing^s sarcoma
     Dosage: NOT SPECIFIED
     Route: 065
  4. MESNA [Suspect]
     Active Substance: MESNA
     Indication: Ewing^s sarcoma
     Dosage: NOT SPECIFIED
     Route: 065
  5. SENNOSIDES [Suspect]
     Active Substance: SENNOSIDES
     Indication: Ewing^s sarcoma
     Dosage: NOT SPECIFIED
     Route: 065
  6. VINCRISTINE SULFATE [Suspect]
     Active Substance: VINCRISTINE SULFATE
     Indication: Ewing^s sarcoma
     Dosage: NOT SPECIFIED
     Route: 065
  7. ZINECARD [Suspect]
     Active Substance: DEXRAZOXANE HYDROCHLORIDE
     Indication: Ewing^s sarcoma
     Dosage: POWDER FOR SOLUTION INTRAVENOUS
     Route: 065
  8. EMEND [Concomitant]
     Active Substance: APREPITANT
     Indication: Product used for unknown indication
  9. FILGRASTIM [Concomitant]
     Active Substance: FILGRASTIM
     Indication: Product used for unknown indication
  10. LORAZEPAM [Concomitant]
     Active Substance: LORAZEPAM
     Indication: Product used for unknown indication
     Dosage: NOT SPECIFIED
  11. OLANZAPINE [Concomitant]
     Active Substance: OLANZAPINE
     Indication: Product used for unknown indication
     Dosage: NOT SPECIFIED
  12. ONDANSETRON [Concomitant]
     Active Substance: ONDANSETRON
     Indication: Product used for unknown indication
     Dosage: NOT SPECIFIED
  13. SULFAMETHOXAZOLE\TRIMETHOPRIM [Concomitant]
     Active Substance: SULFAMETHOXAZOLE\TRIMETHOPRIM
     Indication: Product used for unknown indication
     Dosage: NOT SPECIFIED
  14. VALACYCLOVIR [Concomitant]
     Active Substance: VALACYCLOVIR HYDROCHLORIDE
     Indication: Product used for unknown indication
     Dosage: NOT SPECIFIED

REACTIONS (1)
  - Febrile neutropenia [Recovered/Resolved]
